FAERS Safety Report 5070391-X (Version None)
Quarter: 2006Q3

REPORT INFORMATION
  Report Type: 
  Country: None (occurrence: None)
  Receive Date: 20060802
  Receipt Date: 20060717
  Transmission Date: 20061208
  Serious: Yes (Hospitalization)
  Sender: FDA-Public Use
  Company Number: L06-TUR-03075-01

PATIENT
  Age: 31 Year
  Sex: Male

DRUGS (3)
  1. ESCITALOPRAM [Suspect]
     Indication: BIPOLAR I DISORDER
     Dosage: 10 MG
  2. LITHIUM [Suspect]
     Indication: BIPOLAR I DISORDER
     Dosage: 1200 MG
  3. LAMOTRIGINE [Concomitant]

REACTIONS (4)
  - CEREBELLAR SYNDROME [None]
  - NAUSEA [None]
  - PNEUMONIA [None]
  - VOMITING [None]
